FAERS Safety Report 8033331-7 (Version None)
Quarter: 2012Q1

REPORT INFORMATION
  Report Type: 
  Country: None (occurrence: None)
  Receive Date: 20120110
  Receipt Date: 20120104
  Transmission Date: 20120608
  Serious: Yes (Hospitalization, Other)
  Sender: FDA-Public Use
  Company Number: DK-JNJFOC-20111102985

PATIENT
  Sex: Female

DRUGS (6)
  1. MELATONIN [Concomitant]
     Route: 065
  2. LYRICA [Concomitant]
     Indication: ANXIETY
     Route: 065
  3. PHENERGAN [Concomitant]
     Route: 065
  4. CONCERTA [Suspect]
     Indication: ATTENTION DEFICIT/HYPERACTIVITY DISORDER
     Route: 048
     Dates: start: 20110307
  5. RITALIN [Concomitant]
     Route: 065
  6. CONCERTA [Suspect]
     Route: 048
     Dates: start: 20110315, end: 20110320

REACTIONS (3)
  - PSYCHOTIC BEHAVIOUR [None]
  - DRUG INEFFECTIVE [None]
  - SUICIDAL IDEATION [None]
